FAERS Safety Report 6357672-4 (Version None)
Quarter: 2009Q3

REPORT INFORMATION
  Report Type: 
  Country: None (occurrence: None)
  Receive Date: 20090916
  Receipt Date: 20090911
  Transmission Date: 20100115
  Serious: Yes (Hospitalization)
  Sender: FDA-Public Use
  Company Number: US-BRISTOL-MYERS SQUIBB COMPANY-14776652

PATIENT
  Age: 64 Year
  Sex: Female
  Weight: 56 kg

DRUGS (4)
  1. CETUXIMAB [Suspect]
     Indication: NON-SMALL CELL LUNG CANCER
     Dosage: 400MG/M22HRS DAY 1;400MG/M21HR DAYS 8,15,22,29,36,43,50;250MG/M2 1 HRDAYS 57,64,71,78,85,92,99,106
     Route: 042
     Dates: start: 20090511, end: 20090709
  2. CARBOPLATIN [Suspect]
     Indication: NON-SMALL CELL LUNG CANCER
     Route: 042
     Dates: start: 20090817, end: 20090817
  3. TAXOL [Suspect]
     Indication: NON-SMALL CELL LUNG CANCER
     Route: 042
     Dates: start: 20090817, end: 20090817
  4. RADIATION THERAPY [Suspect]
     Indication: NON-SMALL CELL LUNG CANCER
     Dosage: 1 DF = 74GY; NO OF FRACTIONS:37 NO OF ELAPSED DAYS:37
     Dates: start: 20090511, end: 20090709

REACTIONS (5)
  - DYSPHAGIA [None]
  - HAEMOGLOBIN DECREASED [None]
  - HYPOKALAEMIA [None]
  - OESOPHAGEAL STENOSIS [None]
  - PLATELET COUNT DECREASED [None]
